FAERS Safety Report 9899393 (Version 1)
Quarter: 2014Q1

REPORT INFORMATION
  Report Type: Spontaneous
  Country: IN (occurrence: IN)
  Receive Date: 20140214
  Receipt Date: 20140214
  Transmission Date: 20141002
  Serious: Yes (Other)
  Sender: FDA-Public Use
  Company Number: IN-MYLANLABS-2014S1002578

PATIENT
  Age: 23 Year
  Sex: Female

DRUGS (6)
  1. PREDNISOLONE [Suspect]
     Indication: IMMUNE THROMBOCYTOPENIC PURPURA
     Dosage: INCREASED TO 60MG AT 13W GESTATION
     Route: 065
  2. PREDNISOLONE [Suspect]
     Indication: IMMUNE THROMBOCYTOPENIC PURPURA
     Dosage: 60MG; DECREASED TO 10 MG/DAY AFTER SPLENECTOMY
     Route: 065
  3. PREDNISOLONE [Suspect]
     Indication: IMMUNE THROMBOCYTOPENIC PURPURA
     Dosage: 10 MG/DAY; INCREASED TO 50MG
     Route: 065
  4. PREDNISOLONE [Suspect]
     Indication: IMMUNE THROMBOCYTOPENIC PURPURA
     Dosage: 50MG
     Route: 065
  5. METHYLPREDNISOLONE [Suspect]
     Indication: IMMUNE THROMBOCYTOPENIC PURPURA
     Dosage: TAPERED GRADUALLY
     Route: 042
  6. IMMUNE GLOBULIN [Concomitant]
     Indication: IMMUNE THROMBOCYTOPENIC PURPURA
     Dosage: 2 DOSES OF 60G (1G/KG) ON ALTERNATE DAYS
     Route: 042

REACTIONS (2)
  - Gestational diabetes [Recovering/Resolving]
  - Maternal exposure during pregnancy [Recovering/Resolving]
